FAERS Safety Report 19922529 (Version 1)
Quarter: 2021Q4

REPORT INFORMATION
  Report Type: Spontaneous
  Country: US (occurrence: US)
  Receive Date: 20211005
  Receipt Date: 20211005
  Transmission Date: 20220303
  Serious: Yes (Death)
  Sender: FDA-Public Use
  Company Number: None

PATIENT
  Age: 75 Year
  Sex: Female

DRUGS (6)
  1. STELARA [Suspect]
     Active Substance: USTEKINUMAB
     Indication: Psoriasis
     Dosage: ?          OTHER FREQUENCY:EVERY 12 WEEKS;
     Route: 058
     Dates: start: 20210723
  2. BUSPIRONE [Concomitant]
     Active Substance: BUSPIRONE HYDROCHLORIDE
  3. DONEPEZIL [Concomitant]
     Active Substance: DONEPEZIL
  4. FERROUS SULFATE [Concomitant]
     Active Substance: FERROUS SULFATE
  5. LORAZEPAM [Concomitant]
     Active Substance: LORAZEPAM
  6. SERTRALINE [Concomitant]
     Active Substance: SERTRALINE HYDROCHLORIDE

REACTIONS (1)
  - Death [None]

NARRATIVE: CASE EVENT DATE: 20211001
